FAERS Safety Report 21296952 (Version 1)
Quarter: 2022Q3

REPORT INFORMATION
  Report Type: Spontaneous
  Country: US (occurrence: None)
  Receive Date: 20220902
  Receipt Date: 20220902
  Transmission Date: 20221027
  Serious: Yes (Death, Hospitalization)
  Sender: FDA-Public Use
  Company Number: None

PATIENT
  Age: 79 Year
  Sex: Male
  Weight: 105 kg

DRUGS (2)
  1. CLOPIDOGREL [Suspect]
     Active Substance: CLOPIDOGREL BISULFATE
     Indication: Coronary artery disease
     Dosage: FREQUENCY : DAILY;?
     Route: 048
     Dates: start: 20050912, end: 20220725
  2. APIXABAN [Suspect]
     Active Substance: APIXABAN
     Indication: Atrial fibrillation
     Dosage: FREQUENCY : TWICE A DAY;?
     Route: 048
     Dates: start: 20211123

REACTIONS (5)
  - Gastric haemorrhage [None]
  - Anaemia [None]
  - Therapy interrupted [None]
  - Adenocarcinoma of colon [None]
  - Atrial fibrillation [None]

NARRATIVE: CASE EVENT DATE: 20220726
